FAERS Safety Report 6433462-9 (Version None)
Quarter: 2009Q4

REPORT INFORMATION
  Report Type: 
  Country: None (occurrence: None)
  Receive Date: 20091106
  Receipt Date: 20091106
  Transmission Date: 20100525
  Serious: Yes (Other)
  Sender: FDA-Public Use
  Company Number: None

PATIENT
  Age: 81 Year
  Sex: Female
  Weight: 32.0239 kg

DRUGS (2)
  1. DOXORUBICIN HCL [Suspect]
     Indication: BREAST CANCER
     Dates: start: 19981217, end: 19990128
  2. PACLITAXEL [Suspect]
     Dates: start: 19990211, end: 19990325

REACTIONS (1)
  - OESOPHAGEAL SQUAMOUS CELL CARCINOMA STAGE I [None]
